FAERS Safety Report 14667605 (Version 5)
Quarter: 2018Q3

REPORT INFORMATION
  Report Type: Report from Study
  Country: US (occurrence: US)
  Receive Date: 20180322
  Receipt Date: 20180827
  Transmission Date: 20181010
  Serious: Yes (Life-Threatening, Hospitalization, Other)
  Sender: FDA-Public Use
  Company Number: US-GILEAD-2018-0321105

PATIENT
  Age: 65 Year
  Sex: Female
  Weight: 118.5 kg

DRUGS (8)
  1. AMBRISENTAN [Suspect]
     Active Substance: AMBRISENTAN
     Indication: PULMONARY ARTERIAL HYPERTENSION
     Dosage: 10 MG, QD
     Route: 048
     Dates: start: 2014, end: 20180708
  2. AMBRISENTAN [Suspect]
     Active Substance: AMBRISENTAN
     Dosage: 5 MG, QD
     Route: 065
     Dates: start: 20180709
  3. LOPRESSOR [Concomitant]
     Active Substance: METOPROLOL TARTRATE
  4. UPTRAVI [Suspect]
     Active Substance: SELEXIPAG
     Dosage: 1000 UG, BID
     Route: 065
     Dates: end: 201805
  5. ELIQUIS [Concomitant]
     Active Substance: APIXABAN
  6. TADALAFIL [Suspect]
     Active Substance: TADALAFIL
     Indication: PULMONARY ARTERIAL HYPERTENSION
     Dosage: 40 MG, UNK
     Route: 048
     Dates: start: 2014
  7. UPTRAVI [Suspect]
     Active Substance: SELEXIPAG
     Indication: PULMONARY ARTERIAL HYPERTENSION
     Dosage: 1400 UG, BID
     Route: 048
     Dates: start: 201705
  8. TADALAFIL [Suspect]
     Active Substance: TADALAFIL
     Dosage: 20 MG, QD
     Route: 065

REACTIONS (15)
  - Right ventricular failure [Unknown]
  - Cardiac disorder [Recovered/Resolved]
  - Dyspnoea [Recovered/Resolved]
  - Dyspnoea exertional [Unknown]
  - Cellulitis [Not Recovered/Not Resolved]
  - Acute kidney injury [Unknown]
  - Dyspnoea [Unknown]
  - Acute respiratory failure [Recovered/Resolved]
  - Dyspnoea [Not Recovered/Not Resolved]
  - Atrial fibrillation [Recovered/Resolved]
  - Nasopharyngitis [Unknown]
  - Right ventricular failure [Unknown]
  - Unevaluable event [Not Recovered/Not Resolved]
  - Fluid retention [Unknown]
  - Cardiac failure high output [Unknown]

NARRATIVE: CASE EVENT DATE: 2018
